FAERS Safety Report 18815772 (Version 1)
Quarter: 2021Q1

REPORT INFORMATION
  Report Type: Spontaneous
  Country: US (occurrence: US)
  Receive Date: 20210201
  Receipt Date: 20210201
  Transmission Date: 20210419
  Serious: Yes (Hospitalization)
  Sender: FDA-Public Use
  Company Number: None

PATIENT
  Age: 89 Year
  Sex: Male

DRUGS (10)
  1. PRALUENT [Suspect]
     Active Substance: ALIROCUMAB
     Indication: HYPERLIPIDAEMIA
     Dosage: ?          OTHER FREQUENCY:EVERY 2 WEEKS;?
     Route: 058
     Dates: start: 20190601
  2. TIZANIDINE 2MG [Concomitant]
     Active Substance: TIZANIDINE
  3. JARDIANCE [Concomitant]
     Active Substance: EMPAGLIFLOZIN
  4. WARFARIN  4MG [Concomitant]
     Active Substance: WARFARIN
  5. LOSARATAN 100MG [Concomitant]
  6. POTASSIUM CHLORIDE 20MEQ [Concomitant]
     Active Substance: POTASSIUM CHLORIDE
  7. CARVEDILOL 25MG [Concomitant]
     Active Substance: CARVEDILOL
  8. FUROSEMIDE 20MG [Concomitant]
     Active Substance: FUROSEMIDE
  9. GABAPENTIN 100MG [Concomitant]
     Active Substance: GABAPENTIN
  10. OMEPRAZOLE 20MG [Concomitant]
     Active Substance: OMEPRAZOLE

REACTIONS (2)
  - Fall [None]
  - Hip fracture [None]

NARRATIVE: CASE EVENT DATE: 20210126
